FAERS Safety Report 18242868 (Version 3)
Quarter: 2020Q4

REPORT INFORMATION
  Report Type: Report from Study
  Country: US (occurrence: US)
  Receive Date: 20200908
  Receipt Date: 20201009
  Transmission Date: 20210113
  Serious: Yes (Hospitalization, Other)
  Sender: FDA-Public Use
  Company Number: US-EISAI MEDICAL RESEARCH-EC-2018-045257

PATIENT
  Age: 64 Year
  Sex: Female
  Weight: 111.1 kg

DRUGS (22)
  1. LENVIMA [Suspect]
     Active Substance: LENVATINIB
     Route: 048
     Dates: start: 2020
  2. VICODIN [Concomitant]
     Active Substance: ACETAMINOPHEN\HYDROCODONE BITARTRATE
     Dosage: 5 MG - 50 MG
  3. AZITHROMYCIN ANHYDROUS. [Concomitant]
     Active Substance: AZITHROMYCIN ANHYDROUS
  4. ENTRESTO [Concomitant]
     Active Substance: SACUBITRIL\VALSARTAN
     Dosage: 24 MG-26MG
  5. MULTIVITAMINS [Concomitant]
     Active Substance: VITAMINS
  6. LENVIMA [Suspect]
     Active Substance: LENVATINIB
     Indication: THYROID CANCER
     Route: 048
     Dates: start: 20180916, end: 201809
  7. LENVIMA [Suspect]
     Active Substance: LENVATINIB
     Route: 048
     Dates: start: 20200513, end: 202008
  8. ADVIL [Concomitant]
     Active Substance: IBUPROFEN
  9. REQUIP [Concomitant]
     Active Substance: ROPINIROLE HYDROCHLORIDE
  10. ROSUVASTATIN CALCIUM. [Concomitant]
     Active Substance: ROSUVASTATIN CALCIUM
  11. SELENIUM [Concomitant]
     Active Substance: SELENIUM
  12. VITAMIN B12 [Concomitant]
     Active Substance: CYANOCOBALAMIN
     Dosage: 2500 MC
  13. DIGOXIN. [Suspect]
     Active Substance: DIGOXIN
     Indication: PRODUCT USED FOR UNKNOWN INDICATION
     Dosage: DOSE AND FREQUENCY UNKNOWN
  14. LIOTHYRONINE SODIUM. [Concomitant]
     Active Substance: LIOTHYRONINE SODIUM
  15. MONTELUKAST SODIUM. [Concomitant]
     Active Substance: MONTELUKAST SODIUM
  16. LATANOPROST. [Concomitant]
     Active Substance: LATANOPROST
  17. MUPIROCIN. [Concomitant]
     Active Substance: MUPIROCIN
  18. PRILOSEC [Concomitant]
     Active Substance: OMEPRAZOLE MAGNESIUM
  19. CHLORTHALIDONE. [Concomitant]
     Active Substance: CHLORTHALIDONE
  20. FLUCONAZOLE. [Concomitant]
     Active Substance: FLUCONAZOLE
  21. IBUPROFEN. [Concomitant]
     Active Substance: IBUPROFEN
  22. ROPINIROLE. [Concomitant]
     Active Substance: ROPINIROLE

REACTIONS (24)
  - Cataract [Unknown]
  - Clostridial infection [Unknown]
  - Muscle spasms [Recovering/Resolving]
  - Insomnia [Unknown]
  - Oral pain [Unknown]
  - Walking aid user [Unknown]
  - Candida infection [Unknown]
  - Hypotension [Unknown]
  - Nausea [Not Recovered/Not Resolved]
  - Dry mouth [Unknown]
  - Toxicity to various agents [Unknown]
  - Arthralgia [Unknown]
  - Spinal stenosis [Unknown]
  - Blood pressure diastolic increased [Unknown]
  - Stomatitis [Unknown]
  - Dizziness [Unknown]
  - Dyspnoea exertional [Unknown]
  - Fatigue [Unknown]
  - Weight decreased [Unknown]
  - Blood pressure increased [Recovering/Resolving]
  - Decreased appetite [Unknown]
  - Dehydration [Unknown]
  - Scoliosis [Unknown]
  - Cough [Unknown]

NARRATIVE: CASE EVENT DATE: 2018
